FAERS Safety Report 16502829 (Version 2)
Quarter: 2019Q3

REPORT INFORMATION
  Report Type: Spontaneous
  Country: US (occurrence: US)
  Receive Date: 20190701
  Receipt Date: 20190701
  Transmission Date: 20191004
  Serious: No
  Sender: FDA-Public Use
  Company Number: US-BAYER-2019-123649

PATIENT
  Age: 77 Year
  Sex: Female
  Weight: 89 kg

DRUGS (1)
  1. MIRALAX [Suspect]
     Active Substance: POLYETHYLENE GLYCOL 3350
     Indication: GASTROINTESTINAL DISORDER
     Dosage: 1 DF, HS
     Route: 048
     Dates: start: 2016

REACTIONS (3)
  - Product use issue [None]
  - Product packaging difficult to open [None]
  - Expired product administered [Unknown]

NARRATIVE: CASE EVENT DATE: 2016
